FAERS Safety Report 5709788-0 (Version None)
Quarter: 2008Q2

REPORT INFORMATION
  Report Type: 
  Country: None (occurrence: None)
  Receive Date: 20080418
  Receipt Date: 20080415
  Transmission Date: 20081010
  Serious: Yes (Other)
  Sender: FDA-Public Use
  Company Number: US-JNJFOC-20080404670

PATIENT
  Age: 46 Year
  Sex: Female

DRUGS (1)
  1. INVEGA [Suspect]
     Indication: BIPOLAR DISORDER
     Route: 048

REACTIONS (4)
  - CHILLS [None]
  - FLUSHING [None]
  - MUSCLE SPASMS [None]
  - TARDIVE DYSKINESIA [None]
